FAERS Safety Report 23236365 (Version 2)
Quarter: 2023Q4

REPORT INFORMATION
  Report Type: Spontaneous
  Country: JP (occurrence: JP)
  Receive Date: 20231128
  Receipt Date: 20231225
  Transmission Date: 20240110
  Serious: Yes (Other)
  Sender: FDA-Public Use
  Company Number: JP-002147023-NVSJ2023JP016746

PATIENT
  Age: 32 Year
  Sex: Female

DRUGS (3)
  1. LETROZOLE [Suspect]
     Active Substance: LETROZOLE
     Indication: Infertility female
     Dosage: UNK
     Route: 048
  2. LETROZOLE [Suspect]
     Active Substance: LETROZOLE
     Dosage: DOUBLED DOSE
     Route: 065
  3. DYDROGESTERONE [Suspect]
     Active Substance: DYDROGESTERONE
     Indication: Infertility female
     Route: 048

REACTIONS (1)
  - Meniere^s disease [Unknown]
